FAERS Safety Report 5631751-9 (Version None)
Quarter: 2008Q1

REPORT INFORMATION
  Report Type: 
  Country: None (occurrence: None)
  Receive Date: 20080213
  Receipt Date: 20080201
  Transmission Date: 20080703
  Serious: Yes (Hospitalization)
  Sender: FDA-Public Use
  Company Number: GXKR2008DE01339

PATIENT
  Age: 42 Year
  Sex: Female

DRUGS (3)
  1. LEFLUNOMIDE [Suspect]
     Indication: RHEUMATOID ARTHRITIS
     Dosage: 100 MG, QD,; 20 MG, QD,
  2. PREDNISOLONE [Concomitant]
  3. GLUCOCORTICOSTEROIDS (NO INGREDIENTS/SUBSTANCES) [Concomitant]

REACTIONS (6)
  - CONDITION AGGRAVATED [None]
  - CUTANEOUS LUPUS ERYTHEMATOSUS [None]
  - GENERALISED ERYTHEMA [None]
  - LEUKOPENIA [None]
  - MUCOSAL ULCERATION [None]
  - RHEUMATOID ARTHRITIS [None]
